FAERS Safety Report 15967832 (Version 1)
Quarter: 2019Q1

REPORT INFORMATION
  Report Type: Spontaneous
  Country: US (occurrence: US)
  Receive Date: 20190215
  Receipt Date: 20190215
  Transmission Date: 20190418
  Serious: No
  Sender: FDA-Public Use
  Company Number: US-TEVA-2019-US-1001131

PATIENT
  Sex: Male

DRUGS (4)
  1. CLONAZEPAM ACTAVIS [Suspect]
     Active Substance: CLONAZEPAM
     Indication: ANXIETY
     Dosage: 3 MILLIGRAM DAILY; TAKES 3 MG A DAY AND SPLITS THEM TO TAKE 6 TIMES A DAY
  2. BUSPAR MYLAN [Concomitant]
  3. DIAZEPAM. [Concomitant]
     Active Substance: DIAZEPAM
  4. CLONAZEPAM ACTAVIS [Suspect]
     Active Substance: CLONAZEPAM
     Indication: PANIC DISORDER

REACTIONS (5)
  - Dysuria [Unknown]
  - Product substitution issue [Unknown]
  - Mobility decreased [Unknown]
  - Anxiety [Recovering/Resolving]
  - Impaired self-care [Unknown]
